FAERS Safety Report 10501476 (Version 1)
Quarter: 2014Q4

REPORT INFORMATION
  Report Type: Spontaneous
  Country: US (occurrence: None)
  Receive Date: 20141006
  Receipt Date: 20141006
  Transmission Date: 20150528
  Serious: Yes (Life-Threatening, Other)
  Sender: FDA-Public Use
  Company Number: None

PATIENT
  Age: 58 Year
  Sex: Female
  Weight: 45.36 kg

DRUGS (1)
  1. DEPO-MEDROL [Suspect]
     Active Substance: METHYLPREDNISOLONE ACETATE
     Indication: PAIN

REACTIONS (4)
  - Off label use [None]
  - Functional gastrointestinal disorder [None]
  - Nerve root injury [None]
  - Bladder disorder [None]

NARRATIVE: CASE EVENT DATE: 20140102
